FAERS Safety Report 5724333-1 (Version None)
Quarter: 2008Q2

REPORT INFORMATION
  Report Type: 
  Country: None (occurrence: None)
  Receive Date: 20080428
  Receipt Date: 20080418
  Transmission Date: 20081010
  Serious: Yes (Death, Hospitalization, Other)
  Sender: FDA-Public Use
  Company Number: 2007-04013

PATIENT
  Age: 56 Year
  Sex: Male
  Weight: 48 kg

DRUGS (12)
  1. VELCADE [Suspect]
     Indication: MULTIPLE MYELOMA
     Dosage: 1.9 MG, INTRAVENOUS
     Route: 042
     Dates: start: 20071026, end: 20071123
  2. DEXAMETHASONE TAB [Suspect]
     Indication: MULTIPLE MYELOMA
     Dosage: 8 MG, INTRAVENOUS
     Route: 042
     Dates: start: 20071026, end: 20071127
  3. STROCAIN /INO/ (OXETACAINE) [Concomitant]
  4. GASMOTIN (MOSAPRIDE CITRATE) [Concomitant]
  5. PANTOSIN (PANTETHINE) [Concomitant]
  6. MAGNESIUM OXIDE (MAGNESIUM OXIDE) [Concomitant]
  7. PROTECADIN /JPN/ (LAFUTIDINE) [Concomitant]
  8. DIFLUCAN [Concomitant]
  9. BACTRIM [Concomitant]
  10. ZOVIRAX [Concomitant]
  11. MUCOSTA (REBAMIPIDE) [Concomitant]
  12. PURSENNID (SENNA LEAF) [Concomitant]

REACTIONS (9)
  - ABDOMINAL PAIN [None]
  - ABDOMINAL PAIN UPPER [None]
  - ABNORMAL BEHAVIOUR [None]
  - ALTERED STATE OF CONSCIOUSNESS [None]
  - BLOOD IMMUNOGLOBULIN G INCREASED [None]
  - DISEASE PROGRESSION [None]
  - NO THERAPEUTIC RESPONSE [None]
  - PAIN IN EXTREMITY [None]
  - PLATELET COUNT DECREASED [None]
